FAERS Safety Report 8194354-0 (Version None)
Quarter: 2012Q1

REPORT INFORMATION
  Report Type: 
  Country: None (occurrence: None)
  Receive Date: 20120308
  Receipt Date: 20120301
  Transmission Date: 20120608
  Serious: Yes (Other)
  Sender: FDA-Public Use
  Company Number: CA-GENZYME-201015099NA

PATIENT
  Sex: Female

DRUGS (1)
  1. CAMPATH [Suspect]
     Indication: T-CELL PROLYMPHOCYTIC LEUKAEMIA
     Dosage: APPROXIMATE START DATE MAR, APR OR MAY 2007
     Route: 065
     Dates: start: 20070101

REACTIONS (2)
  - T-CELL PROLYMPHOCYTIC LEUKAEMIA [None]
  - CONDITION AGGRAVATED [None]
